FAERS Safety Report 20184834 (Version 1)
Quarter: 2021Q4

REPORT INFORMATION
  Report Type: Spontaneous
  Country: US (occurrence: US)
  Receive Date: 20211214
  Receipt Date: 20211214
  Transmission Date: 20220303
  Serious: Yes (Death, Other)
  Sender: FDA-Public Use
  Company Number: US-SUN PHARMACEUTICAL INDUSTRIES LTD-2021R1-320124

PATIENT
  Sex: Male

DRUGS (2)
  1. YONSA [Suspect]
     Active Substance: ABIRATERONE ACETATE
     Indication: Product used for unknown indication
     Dosage: 4 ONCE DAILY
     Route: 048
     Dates: start: 20210925, end: 20211028
  2. METHYLPREDNISOLONE [Suspect]
     Active Substance: METHYLPREDNISOLONE
     Indication: Product used for unknown indication
     Dosage: 1 TWICE DAILY
     Route: 048
     Dates: start: 20210925, end: 20211028

REACTIONS (1)
  - Death [Fatal]
